FAERS Safety Report 13307678 (Version 1)
Quarter: 2017Q1

REPORT INFORMATION
  Report Type: Spontaneous
  Country: ES (occurrence: ES)
  Receive Date: 20170308
  Receipt Date: 20170308
  Transmission Date: 20170428
  Serious: Yes (Other)
  Sender: FDA-Public Use
  Company Number: ES-ELI_LILLY_AND_COMPANY-ES201703000807

PATIENT
  Age: 76 Year
  Sex: Female

DRUGS (10)
  1. AMLODIPINE [Concomitant]
     Active Substance: AMLODIPINE BESYLATE
     Dosage: 10 MG, QD
     Route: 048
  2. SIMVASTATINE [Concomitant]
     Active Substance: SIMVASTATIN
     Dosage: UNK, UNKNOWN
     Route: 048
  3. TERIPARATIDE [Suspect]
     Active Substance: TERIPARATIDE
     Indication: PRODUCT USED FOR UNKNOWN INDICATION
     Dosage: 20 UG, QD
     Route: 058
     Dates: start: 20150101, end: 20160701
  4. HIDROSALUTERIL [Concomitant]
     Dosage: 50 MG, QD
     Route: 048
  5. OMEPRAZOLE MYLAN                   /00661201/ [Concomitant]
     Dosage: 20 MG, QD
     Route: 048
  6. HIDROFEROL [Concomitant]
     Active Substance: CALCIFEDIOL
     Dosage: 1 DF, MONTHLY (1/M)
     Route: 048
  7. QUETIAPINE                         /01270902/ [Concomitant]
     Active Substance: QUETIAPINE FUMARATE
     Dosage: 50 MG, QD
     Route: 048
  8. TRANXILIUM [Concomitant]
     Active Substance: CLORAZEPATE DIPOTASSIUM
     Route: 048
  9. CYMBALTA [Concomitant]
     Active Substance: DULOXETINE HYDROCHLORIDE
     Dosage: 30 MG, QD
     Route: 048
  10. ENALAPRIL NORMON [Concomitant]
     Dosage: 20 MG, QD
     Route: 048

REACTIONS (7)
  - Sensorimotor disorder [Unknown]
  - Back pain [Unknown]
  - Diverticulum intestinal [Unknown]
  - Blood pressure increased [Unknown]
  - Dyslipidaemia [Unknown]
  - Cholestasis [Recovering/Resolving]
  - Muscular weakness [Unknown]

NARRATIVE: CASE EVENT DATE: 20160626
